FAERS Safety Report 19997717 (Version 1)
Quarter: 2021Q4

REPORT INFORMATION
  Report Type: Spontaneous
  Country: US (occurrence: US)
  Receive Date: 20211026
  Receipt Date: 20211026
  Transmission Date: 20220303
  Serious: No
  Sender: FDA-Public Use
  Company Number: US-ORGANON-O2110USA001933

PATIENT
  Age: 19 Year
  Sex: Female
  Weight: 59.41 kg

DRUGS (2)
  1. NEXPLANON [Suspect]
     Active Substance: ETONOGESTREL
     Indication: Contraception
     Dosage: 1 DOSAGE FORM OF 68 MG EVERY 3 YEARS
     Dates: start: 20200117
  2. NEXPLANON [Suspect]
     Active Substance: ETONOGESTREL
     Indication: Heavy menstrual bleeding

REACTIONS (3)
  - Implant site pain [Not Recovered/Not Resolved]
  - Implant site paraesthesia [Not Recovered/Not Resolved]
  - Product use in unapproved indication [Unknown]

NARRATIVE: CASE EVENT DATE: 20200117
